FAERS Safety Report 15887799 (Version 5)
Quarter: 2024Q4

REPORT INFORMATION
  Report Type: Spontaneous
  Country: BG (occurrence: BG)
  Receive Date: 20190130
  Receipt Date: 20241025
  Transmission Date: 20250114
  Serious: Yes (Death, Other)
  Sender: ACCORD
  Company Number: None

PATIENT
  Age: 67 Year
  Sex: Male

DRUGS (6)
  1. BICALUTAMIDE [Suspect]
     Active Substance: BICALUTAMIDE
     Indication: Prostate cancer
     Dosage: USED AS INITIAL TREATMENT
     Route: 042
  2. DOCETAXEL [Suspect]
     Active Substance: DOCETAXEL
     Indication: Prostate cancer
     Dosage: IT STARTS AFTER A NEW TUMOR MARKER RISES
     Route: 042
  3. MITOXANTRONE [Suspect]
     Active Substance: MITOXANTRONE HYDROCHLORIDE
     Indication: Prostate cancer
     Route: 042
     Dates: start: 2016
  4. ENZALUTAMIDE [Suspect]
     Active Substance: ENZALUTAMIDE
     Indication: Prostate cancer
     Dosage: 160 MILLIGRAM DAILY
     Route: 042
     Dates: start: 2015
  5. DENOSUMAB [Suspect]
     Active Substance: DENOSUMAB
     Indication: Prostate cancer
     Dosage: USED AS INITIAL TREATMENT
     Route: 042
  6. RADIUM RA-223 DICHLORIDE [Suspect]
     Active Substance: RADIUM RA-223 DICHLORIDE
     Indication: Prostate cancer
     Dosage: A TOTAL OF 35.2 MBQ (55 KBQ / KG) AND AN AVERAGE OF 8.8 MBQ OF APPLICATION
     Route: 042
     Dates: start: 20170425, end: 20170719

REACTIONS (8)
  - Disease recurrence [Unknown]
  - Thrombocytopenia [Recovered/Resolved]
  - Anaemia [Recovered/Resolved]
  - Drug ineffective [Unknown]
  - Prostate cancer [Unknown]
  - Disease progression [Unknown]
  - Prostate cancer recurrent [Unknown]
  - Death [Fatal]

NARRATIVE: CASE EVENT DATE: 20170701
